FAERS Safety Report 11620748 (Version 1)
Quarter: 2015Q4

REPORT INFORMATION
  Report Type: Spontaneous
  Country: KR (occurrence: KR)
  Receive Date: 20151012
  Receipt Date: 20151012
  Transmission Date: 20160304
  Serious: Yes (Hospitalization, Other)
  Sender: FDA-Public Use
  Company Number: KR-PFIZER INC-2015335118

PATIENT
  Age: 65 Year
  Sex: Male

DRUGS (1)
  1. DEPO-MEDROL [Suspect]
     Active Substance: METHYLPREDNISOLONE ACETATE
     Dosage: 1 ML OF 40 MG/CC , SINGLE

REACTIONS (2)
  - Dysphagia [Recovered/Resolved]
  - Oesophageal perforation [Recovered/Resolved]
